FAERS Safety Report 5332638-1 (Version None)
Quarter: 2007Q2

REPORT INFORMATION
  Report Type: 
  Country: None (occurrence: None)
  Receive Date: 20070523
  Receipt Date: 20070516
  Transmission Date: 20071010
  Serious: Yes (Other)
  Sender: FDA-Public Use
  Company Number: US-PFIZER INC-2007039589

PATIENT
  Sex: Female
  Weight: 79.545 kg

DRUGS (4)
  1. ZYRTEC [Suspect]
     Indication: HYPERSENSITIVITY
     Dates: start: 20010101, end: 20070511
  2. ASPIRIN [Concomitant]
  3. VITAMINS [Concomitant]
  4. CALCIUM CHLORIDE [Concomitant]

REACTIONS (3)
  - CARTILAGE INJURY [None]
  - PRURITUS [None]
  - PRURITUS GENERALISED [None]
